FAERS Safety Report 5740903-9 (Version None)
Quarter: 2008Q2

REPORT INFORMATION
  Report Type: 
  Country: None (occurrence: None)
  Receive Date: 20080516
  Receipt Date: 20080421
  Transmission Date: 20081010
  Serious: No
  Sender: FDA-Public Use
  Company Number: US-BOEHRINGER INGELHEIM GMBH, GERMANY-2008-BP-06287PF

PATIENT
  Age: 49 Year
  Sex: Male

DRUGS (5)
  1. SPIRIVA [Suspect]
     Indication: CHRONIC OBSTRUCTIVE PULMONARY DISEASE
     Route: 055
     Dates: start: 20071101, end: 20071101
  2. NEURONTIN [Concomitant]
     Indication: NERVE INJURY
  3. DEPAKOTE [Concomitant]
     Indication: NERVE INJURY
  4. LISINOPRIL [Concomitant]
     Indication: HYPERTENSION
  5. AMITRIPTYLINE HCL [Concomitant]

REACTIONS (3)
  - DRUG INEFFECTIVE [None]
  - PHARYNGOLARYNGEAL PAIN [None]
  - THROAT IRRITATION [None]
